FAERS Safety Report 16596321 (Version 1)
Quarter: 2019Q3

REPORT INFORMATION
  Report Type: Spontaneous
  Country: US (occurrence: US)
  Receive Date: 20190718
  Receipt Date: 20190718
  Transmission Date: 20191004
  Serious: Yes (Hospitalization)
  Sender: FDA-Public Use
  Company Number: None

PATIENT
  Age: 59 Year
  Sex: Male

DRUGS (5)
  1. LANSOPRAZOLE. [Concomitant]
     Active Substance: LANSOPRAZOLE
  2. LORATADINE. [Concomitant]
     Active Substance: LORATADINE
  3. LOSARTAN. [Concomitant]
     Active Substance: LOSARTAN
  4. ENBREL [Suspect]
     Active Substance: ETANERCEPT
     Indication: PSORIATIC ARTHROPATHY
     Dosage: ?          OTHER FREQUENCY:WEEKLY;?
     Route: 058
     Dates: start: 20170925
  5. CALCIFEROL [Concomitant]

REACTIONS (2)
  - Therapy cessation [None]
  - Gallbladder operation [None]

NARRATIVE: CASE EVENT DATE: 20190710
